FAERS Safety Report 8066429-8 (Version None)
Quarter: 2012Q1

REPORT INFORMATION
  Report Type: 
  Country: None (occurrence: None)
  Receive Date: 20120124
  Receipt Date: 20120111
  Transmission Date: 20120608
  Serious: Yes (Hospitalization)
  Sender: FDA-Public Use
  Company Number: US-RB-033548-12

PATIENT
  Sex: Male

DRUGS (7)
  1. PLACEBO [Suspect]
     Route: 048
  2. PLACEBO [Suspect]
     Route: 048
  3. CELEXA [Concomitant]
  4. ALBUTEROL [Concomitant]
  5. MUCINEX [Suspect]
     Route: 048
  6. GUAIFENESIN [Suspect]
     Route: 048
  7. XANAX [Concomitant]
     Dosage: AS NEEDED.

REACTIONS (12)
  - DIZZINESS [None]
  - PYREXIA [None]
  - WHEEZING [None]
  - HYPOACUSIS [None]
  - DYSPNOEA [None]
  - CHILLS [None]
  - MYALGIA [None]
  - OTORRHOEA [None]
  - PNEUMONIA [None]
  - ARTHRALGIA [None]
  - CHEST PAIN [None]
  - DEHYDRATION [None]
